FAERS Safety Report 6445386-1 (Version None)
Quarter: 2009Q4

REPORT INFORMATION
  Report Type: 
  Country: None (occurrence: None)
  Receive Date: 20091118
  Receipt Date: 20091105
  Transmission Date: 20100525
  Serious: Yes (Hospitalization, Other)
  Sender: FDA-Public Use
  Company Number: PHHY2009US48952

PATIENT
  Age: 63 Year
  Sex: Male

DRUGS (4)
  1. LEPONEX [Suspect]
     Indication: BIPOLAR DISORDER
     Dosage: 150 MG, BID
  2. LEPONEX [Suspect]
     Dosage: 300 MG, BID
  3. LITHIUM CARBONATE [Concomitant]
  4. VALPROIC ACID [Concomitant]

REACTIONS (6)
  - AGRANULOCYTOSIS [None]
  - MANIA [None]
  - NEUTROPENIA [None]
  - PSYCHIATRIC SYMPTOM [None]
  - PYREXIA [None]
  - URINARY TRACT INFECTION [None]
